FAERS Safety Report 10136439 (Version 1)
Quarter: 2014Q2

REPORT INFORMATION
  Report Type: Spontaneous
  Country: US (occurrence: None)
  Receive Date: 20140428
  Receipt Date: 20140428
  Transmission Date: 20141212
  Serious: Yes (Death)
  Sender: FDA-Public Use
  Company Number: None

PATIENT
  Age: 62 Year
  Sex: Female
  Weight: 75.7 kg

DRUGS (11)
  1. EVEROLIMUS [Suspect]
     Indication: NEUROENDOCRINE CARCINOMA
     Dosage: 1 PILL, QD, ORAL
     Route: 048
     Dates: start: 20130819, end: 20140422
  2. X-82 150 MG [Suspect]
     Indication: NEUROENDOCRINE CARCINOMA
     Dosage: 1 DOSE QD ORAL.
     Dates: start: 20130819, end: 20140422
  3. OXYCONTIN [Concomitant]
  4. OXYCODONE [Concomitant]
  5. SYNTHROID [Concomitant]
  6. ANASTROZOLE [Concomitant]
  7. DEXAMETHASONE [Concomitant]
  8. FAMCICLOVIR [Concomitant]
  9. RANITIDINE [Concomitant]
  10. ONDANSETRON [Concomitant]
  11. VITAMIN D [Concomitant]

REACTIONS (7)
  - Chest pain [None]
  - Abdominal pain [None]
  - Unresponsive to stimuli [None]
  - Hypoxia [None]
  - Hypovolaemia [None]
  - Intestinal ischaemia [None]
  - Peritoneal haemorrhage [None]
